FAERS Safety Report 9109041 (Version 2)
Quarter: 2013Q2

REPORT INFORMATION
  Report Type: Spontaneous
  Country: US (occurrence: US)
  Receive Date: 20130222
  Receipt Date: 20130426
  Transmission Date: 20140414
  Serious: Yes (Hospitalization, Other)
  Sender: FDA-Public Use
  Company Number: US-009507513-1302USA009513

PATIENT
  Age: 54 Year
  Sex: Female
  Weight: 70.3 kg

DRUGS (11)
  1. NUVARING [Suspect]
     Indication: CONTRACEPTION
     Dosage: UNK
     Route: 067
     Dates: start: 200302
  2. SYMBICORT [Concomitant]
  3. PAXIL [Concomitant]
  4. BUSPAR [Concomitant]
  5. SINGULAIR [Concomitant]
     Dosage: 10 MG, QD
  6. PROVENTIL [Concomitant]
     Dosage: UNK, PRN
  7. ALLEGRA-D [Concomitant]
  8. ZEGERID [Concomitant]
  9. QNASL [Concomitant]
  10. DEXILANT [Concomitant]
  11. ALBUTEROL [Concomitant]

REACTIONS (4)
  - Cerebrovascular accident [Unknown]
  - Cerebrovascular accident [Unknown]
  - Fall [Unknown]
  - Drooling [Unknown]
